FAERS Safety Report 15746739 (Version 5)
Quarter: 2019Q1

REPORT INFORMATION
  Report Type: Report from Study
  Country: US (occurrence: US)
  Receive Date: 20181220
  Receipt Date: 20190306
  Transmission Date: 20190417
  Serious: No
  Sender: FDA-Public Use
  Company Number: US-SA-2018SA387826

PATIENT
  Age: 68 Year
  Sex: Female
  Weight: 85.71 kg

DRUGS (2)
  1. DUPILUMAB [Suspect]
     Active Substance: DUPILUMAB
     Dosage: UNK
     Route: 058
     Dates: end: 20190104
  2. DUPILUMAB [Suspect]
     Active Substance: DUPILUMAB
     Indication: NEURODERMATITIS
     Dosage: 300 MG, QOW
     Route: 058
     Dates: start: 20171003, end: 20180118

REACTIONS (4)
  - Drug ineffective [Unknown]
  - Alopecia [Recovered/Resolved]
  - Therapeutic response unexpected [Unknown]
  - Eye disorder [Unknown]

NARRATIVE: CASE EVENT DATE: 201802
